FAERS Safety Report 5312618-2 (Version None)
Quarter: 2007Q2

REPORT INFORMATION
  Report Type: 
  Country: None (occurrence: None)
  Receive Date: 20070430
  Receipt Date: 20070426
  Transmission Date: 20071010
  Serious: Yes (Hospitalization)
  Sender: FDA-Public Use
  Company Number: US-BRISTOL-MYERS SQUIBB COMPANY-13761291

PATIENT
  Age: 66 Year
  Sex: Male
  Weight: 83 kg

DRUGS (6)
  1. CETUXIMAB [Suspect]
     Indication: NEOPLASM MALIGNANT
     Route: 042
     Dates: start: 20070306, end: 20070409
  2. CISPLATIN [Suspect]
     Indication: NEOPLASM MALIGNANT
     Route: 042
     Dates: start: 20070306, end: 20070402
  3. RADIATION THERAPY [Suspect]
     Dates: start: 20070412, end: 20070412
  4. AVANDIA [Concomitant]
  5. GLIPIZIDE [Concomitant]
  6. GLUCOPHAGE [Concomitant]

REACTIONS (2)
  - DEHYDRATION [None]
  - HYPERGLYCAEMIA [None]
